FAERS Safety Report 11088257 (Version 2)
Quarter: 2015Q2

REPORT INFORMATION
  Report Type: Spontaneous
  Country: US (occurrence: US)
  Receive Date: 20150504
  Receipt Date: 20150513
  Transmission Date: 20150821
  Serious: No
  Sender: FDA-Public Use
  Company Number: US-VERTEX PHARMACEUTICALS-2015-001243

PATIENT
  Age: 26 Year
  Sex: Female
  Weight: 52 kg

DRUGS (11)
  1. KALYDECO [Suspect]
     Active Substance: IVACAFTOR
     Indication: CYSTIC FIBROSIS
     Dosage: 150 MG, UNK
     Route: 048
  2. VANCOMYCIN [Concomitant]
     Active Substance: VANCOMYCIN
     Route: 055
  3. ADVAIR HFA [Concomitant]
     Active Substance: FLUTICASONE PROPIONATE\SALMETEROL XINAFOATE
  4. PULMOZYME [Concomitant]
     Active Substance: DORNASE ALFA
  5. URSODIOL. [Concomitant]
     Active Substance: URSODIOL
  6. ALBUTEROL. [Concomitant]
     Active Substance: ALBUTEROL
  7. BACTRIM [Concomitant]
     Active Substance: SULFAMETHOXAZOLE\TRIMETHOPRIM
  8. TOBRAMYCIN. [Concomitant]
     Active Substance: TOBRAMYCIN
  9. CREON [Concomitant]
     Active Substance: PANCRELIPASE AMYLASE\PANCRELIPASE LIPASE\PANCRELIPASE PROTEASE
  10. PROTONIX [Concomitant]
     Active Substance: PANTOPRAZOLE SODIUM
  11. HYPERTONIC SALINE SOLUTION [Concomitant]
     Active Substance: SODIUM CHLORIDE

REACTIONS (1)
  - Intentional product misuse [Recovered/Resolved]
